FAERS Safety Report 4285907-0 (Version None)
Quarter: 2004Q1

REPORT INFORMATION
  Report Type: 
  Country: None (occurrence: None)
  Receive Date: 20040205
  Receipt Date: 20031110
  Transmission Date: 20041129
  Serious: Yes (Hospitalization, Other)
  Sender: FDA-Public Use
  Company Number: US-GLAXOSMITHKLINE-A0439007A

PATIENT
  Age: 78 Year
  Sex: Male

DRUGS (5)
  1. WELLBUTRIN SR [Suspect]
     Indication: DEPRESSION
     Dosage: 1TAB TWICE PER DAY
     Route: 048
     Dates: start: 20031001
  2. FLOMAX [Concomitant]
  3. COZAAR [Concomitant]
  4. INDAPAMIDE [Concomitant]
  5. DURAGESIC [Concomitant]

REACTIONS (9)
  - BALANCE DISORDER [None]
  - CHILLS [None]
  - DEPRESSION [None]
  - ERECTILE DYSFUNCTION [None]
  - INSOMNIA [None]
  - MYALGIA [None]
  - MYOCLONUS [None]
  - TREMOR [None]
  - VESTIBULAR DISORDER [None]
